FAERS Safety Report 5316248-8 (Version None)
Quarter: 2007Q2

REPORT INFORMATION
  Report Type: 
  Country: None (occurrence: None)
  Receive Date: 20070503
  Receipt Date: 20070420
  Transmission Date: 20071010
  Serious: Yes (Death, Life-Threatening, Hospitalization)
  Sender: FDA-Public Use
  Company Number: PT-MERCK-0704PRT00007

PATIENT
  Age: 73 Year
  Sex: Male

DRUGS (3)
  1. PRIMAXIN [Suspect]
     Indication: ENDOCARDITIS BACTERIAL
     Route: 041
     Dates: start: 20050801
  2. GENTAMICIN [Concomitant]
     Indication: ENDOCARDITIS BACTERIAL
     Route: 041
     Dates: start: 20050801
  3. CIPROFLOXACIN [Concomitant]
     Indication: ENDOCARDITIS BACTERIAL
     Route: 065
     Dates: start: 20050701

REACTIONS (3)
  - ENDOCARDITIS BACTERIAL [None]
  - PSEUDOMONAS INFECTION [None]
  - SEPSIS [None]
